FAERS Safety Report 8086827-6 (Version None)
Quarter: 2012Q1

REPORT INFORMATION
  Report Type: 
  Country: None (occurrence: None)
  Receive Date: 20120128
  Receipt Date: 20110518
  Transmission Date: 20120608
  Serious: Yes (Hospitalization)
  Sender: FDA-Public Use
  Company Number: US-ABBOTT-11P-163-0726972-00

PATIENT
  Sex: Female
  Weight: 74.91 kg

DRUGS (23)
  1. HUMIRA [Suspect]
     Indication: PSORIATIC ARTHROPATHY
     Dates: start: 20080101, end: 20110415
  2. METHOTREXATE [Concomitant]
     Indication: PSORIATIC ARTHROPATHY
  3. FENTANYL [Concomitant]
     Indication: PAIN
     Dosage: PATCH
  4. TRILIPIX [Concomitant]
     Indication: BLOOD CHOLESTEROL INCREASED
  5. PHENYLALANINE [Concomitant]
     Indication: SUPPLEMENTATION THERAPY
  6. BETMETHASONE CREAM [Concomitant]
     Indication: PSORIASIS
  7. CALCIUM CARBONATE W/VITAMIN D [Concomitant]
     Indication: VITAMIN SUPPLEMENTATION
  8. L-CARNITINE [Concomitant]
     Indication: MINERAL SUPPLEMENTATION
  9. LEVOTHYROXINE SODIUM [Concomitant]
     Indication: HYPOTHYROIDISM
  10. UNKNOWN PAIN CREAM [Concomitant]
     Indication: PAIN
  11. PROTONIX [Concomitant]
     Indication: GASTROOESOPHAGEAL REFLUX DISEASE
  12. FOLIC ACID [Concomitant]
     Indication: VITAMIN SUPPLEMENTATION
  13. LORAZEPAM [Concomitant]
     Indication: ANXIETY
  14. LASIX [Concomitant]
     Indication: FLUID RETENTION
  15. FLEXERIL [Concomitant]
     Indication: PSORIATIC ARTHROPATHY
  16. GABAPENTIN [Concomitant]
     Indication: PRODUCT USED FOR UNKNOWN INDICATION
  17. PRASTERONE [Concomitant]
     Indication: SUPPLEMENTATION THERAPY
  18. CYMBALTA [Concomitant]
     Indication: FIBROMYALGIA
  19. SIMVASTATIN [Concomitant]
     Indication: BLOOD CHOLESTEROL INCREASED
  20. AMANTIDINE [Concomitant]
     Indication: FIBROMYALGIA
  21. MAGNESIUM [Concomitant]
     Indication: MINERAL SUPPLEMENTATION
  22. PYRIDOSTIGMINE BROMIDE [Concomitant]
     Indication: FIBROMYALGIA
  23. PHENERGAN [Concomitant]
     Indication: NAUSEA

REACTIONS (1)
  - BACK PAIN [None]
